FAERS Safety Report 9929543 (Version 2)
Quarter: 2014Q1

REPORT INFORMATION
  Report Type: Report from Study
  Country: US (occurrence: US)
  Receive Date: 20140227
  Receipt Date: 20140328
  Transmission Date: 20141002
  Serious: Yes (Hospitalization)
  Sender: FDA-Public Use
  Company Number: US-ABBVIE-14P-163-1204573-00

PATIENT
  Age: 79 Year
  Sex: Male
  Weight: 90.8 kg

DRUGS (20)
  1. HUMIRA [Suspect]
     Indication: COLITIS ULCERATIVE
     Dosage: 160 MILLIGRAM LOADING DOSE
     Route: 058
     Dates: start: 20140109, end: 20140109
  2. HUMIRA [Suspect]
     Dosage: 80 MILLIGRAM SECOND DOSE
     Route: 058
     Dates: start: 20140206, end: 20140206
  3. ASACOL [Concomitant]
     Indication: COLITIS ULCERATIVE
  4. PROBIOTIC [Concomitant]
     Indication: GASTROINTESTINAL DISORDER
  5. WARFARIN [Concomitant]
     Indication: THROMBOSIS PROPHYLAXIS
  6. ATENOLOL [Concomitant]
     Indication: HYPERTENSION
  7. KLOR-CON [Concomitant]
     Indication: HYPOKALAEMIA
  8. LASIX [Concomitant]
     Indication: FLUID RETENTION
  9. IRBESARTAN [Concomitant]
     Indication: HYPERTENSION
  10. GLIPIZIDE [Concomitant]
     Indication: DIABETES MELLITUS
  11. HUMULIN R [Concomitant]
     Indication: DIABETES MELLITUS
     Dosage: SLIDING SCALE
  12. NOVOLIN N [Concomitant]
     Indication: DIABETES MELLITUS
  13. CLARITIN [Concomitant]
     Indication: HYPERSENSITIVITY
  14. SIMVASTATIN [Concomitant]
     Indication: BLOOD CHOLESTEROL INCREASED
  15. VENTOLIN [Concomitant]
     Indication: CHRONIC OBSTRUCTIVE PULMONARY DISEASE
  16. DILTIAZEM [Concomitant]
     Indication: HYPERTENSION
  17. VITAMIN B 12 [Concomitant]
     Indication: VITAMIN B12 DEFICIENCY
  18. FLUTICASONE [Concomitant]
     Indication: CHRONIC OBSTRUCTIVE PULMONARY DISEASE
  19. SPIRIVA [Concomitant]
     Indication: CHRONIC OBSTRUCTIVE PULMONARY DISEASE
  20. DULERA [Concomitant]
     Indication: CHRONIC OBSTRUCTIVE PULMONARY DISEASE

REACTIONS (5)
  - Respiratory tract congestion [Recovered/Resolved]
  - Wheezing [Recovered/Resolved]
  - Dyspnoea [Recovered/Resolved]
  - Respiratory tract infection [Recovered/Resolved]
  - Oropharyngeal pain [Recovered/Resolved]
